FAERS Safety Report 23288451 (Version 3)
Quarter: 2024Q2

REPORT INFORMATION
  Report Type: Report from Study
  Country: JP (occurrence: JP)
  Receive Date: 20231212
  Receipt Date: 20240426
  Transmission Date: 20240716
  Serious: Yes (Death, Hospitalization)
  Sender: FDA-Public Use
  Company Number: JP-RIGEL Pharmaceuticals, INC-2023FOS001312

PATIENT
  Age: 73 Year
  Sex: Male
  Weight: 51 kg

DRUGS (12)
  1. FOSTAMATINIB DISODIUM [Suspect]
     Active Substance: FOSTAMATINIB DISODIUM
     Indication: Immune thrombocytopenia
     Dosage: 100 MG, BID
     Route: 048
     Dates: start: 20230420, end: 20230620
  2. PREDNISOLONE [Suspect]
     Active Substance: PREDNISOLONE
     Indication: Immune thrombocytopenia
     Dosage: 10 MG, QD
     Route: 048
  3. ROMIPLOSTIM [Suspect]
     Active Substance: ROMIPLOSTIM
     Indication: Immune thrombocytopenia
     Dosage: 500 MICROGRAM/WEEK
     Route: 058
     Dates: end: 20230705
  4. GLOBULIN [Concomitant]
     Indication: Immune thrombocytopenia
     Dosage: UNK
     Route: 042
  5. GLOBULIN [Concomitant]
     Dosage: 20 GRAM, QD
     Route: 042
     Dates: start: 20230622, end: 20230626
  6. REBAMIPIDE [Concomitant]
     Active Substance: REBAMIPIDE
     Indication: Product used for unknown indication
     Dosage: UNK
     Route: 048
  7. AMLODIPINE [Concomitant]
     Active Substance: AMLODIPINE BESYLATE
     Indication: Product used for unknown indication
     Dosage: UNK
     Route: 048
  8. METHYLCOBALAMIN [Concomitant]
     Active Substance: METHYLCOBALAMIN
     Indication: Product used for unknown indication
     Dosage: UNK
     Route: 048
  9. RISEDRONATE SODIUM [Concomitant]
     Active Substance: RISEDRONATE SODIUM
     Indication: Product used for unknown indication
     Dosage: UNK
     Route: 048
  10. SODIUM FERROUS CITRATE [Concomitant]
     Active Substance: SODIUM FERROUS CITRATE
     Indication: Product used for unknown indication
     Dosage: UNK
     Route: 048
  11. DAYVIGO [Concomitant]
     Active Substance: LEMBOREXANT
     Indication: Product used for unknown indication
     Dosage: UNK
     Route: 048
  12. LANSOPRAZOLE [Concomitant]
     Active Substance: LANSOPRAZOLE
     Indication: Product used for unknown indication
     Dosage: UNK
     Route: 048
     Dates: start: 20130712

REACTIONS (8)
  - Small intestine carcinoma [Fatal]
  - Gastrointestinal haemorrhage [Not Recovered/Not Resolved]
  - Haemoglobin decreased [Not Recovered/Not Resolved]
  - Haematocrit decreased [Not Recovered/Not Resolved]
  - Red blood cell count decreased [Not Recovered/Not Resolved]
  - Venous thrombosis limb [Not Recovered/Not Resolved]
  - Blood lactate dehydrogenase increased [Not Recovered/Not Resolved]
  - Diarrhoea [Not Recovered/Not Resolved]

NARRATIVE: CASE EVENT DATE: 20230427
